FAERS Safety Report 9210891 (Version 2)
Quarter: 2013Q2

REPORT INFORMATION
  Report Type: Spontaneous
  Country: US (occurrence: US)
  Receive Date: 20130404
  Receipt Date: 20130607
  Transmission Date: 20140414
  Serious: Yes (Hospitalization, Other)
  Sender: FDA-Public Use
  Company Number: US-AMGEN-USASP2013022190

PATIENT
  Age: 52 Year
  Sex: Male

DRUGS (2)
  1. ENBREL [Suspect]
     Indication: PSORIASIS
     Dosage: 50 MG, 2 TIMES/WK
     Dates: start: 201212
  2. MELOXICAM [Concomitant]
     Indication: ARTHRALGIA
     Dosage: 15 MG, BID
     Route: 048

REACTIONS (4)
  - Glomerulonephritis minimal lesion [Recovered/Resolved]
  - Renal failure [Recovered/Resolved]
  - Swelling [Not Recovered/Not Resolved]
  - Weight increased [Not Recovered/Not Resolved]
